FAERS Safety Report 5844751-0 (Version None)
Quarter: 2008Q3

REPORT INFORMATION
  Report Type: 
  Country: None (occurrence: None)
  Receive Date: 20080814
  Receipt Date: 20080804
  Transmission Date: 20090109
  Serious: Yes (Other)
  Sender: FDA-Public Use
  Company Number: US-JNJFOC-20080801403

PATIENT
  Sex: Female
  Weight: 56.25 kg

DRUGS (1)
  1. ORTHO TRI-CYCLEN LO [Suspect]
     Indication: CONTRACEPTION

REACTIONS (3)
  - BLOOD GLUCOSE DECREASED [None]
  - JAW FRACTURE [None]
  - SYNCOPE [None]
